FAERS Safety Report 4296585-9 (Version None)
Quarter: 2004Q1

REPORT INFORMATION
  Report Type: 
  Country: None (occurrence: None)
  Receive Date: 20040217
  Receipt Date: 20040108
  Transmission Date: 20041129
  Serious: Yes (Hospitalization)
  Sender: FDA-Public Use
  Company Number: JP-GLAXOSMITHKLINE-B0319369A

PATIENT

DRUGS (1)
  1. ALKERAN [Suspect]
     Route: 065
     Dates: start: 19961113, end: 20001128

REACTIONS (2)
  - HEPATIC NEOPLASM MALIGNANT [None]
  - LUNG ADENOCARCINOMA [None]
